FAERS Safety Report 10967683 (Version 1)
Quarter: 2015Q1

REPORT INFORMATION
  Report Type: Spontaneous
  Country: US (occurrence: None)
  Receive Date: 20150226
  Receipt Date: 20150226
  Transmission Date: 20150721
  Serious: No
  Sender: FDA-Public Use
  Company Number: TPA2010A03169

PATIENT
  Age: 48 Year
  Sex: Male
  Weight: 82.56 kg

DRUGS (8)
  1. ULORIC [Suspect]
     Active Substance: FEBUXOSTAT
     Indication: DISEASE RECURRENCE
     Dosage: 1 IN 1 D
     Route: 048
     Dates: start: 20090609, end: 20100517
  2. LIPITOR [Concomitant]
     Active Substance: ATORVASTATIN CALCIUM
  3. LISINOPRIL. [Concomitant]
     Active Substance: LISINOPRIL
  4. PREDNISONE. [Concomitant]
     Active Substance: PREDNISONE
  5. ADVAIR DISKUS [Concomitant]
     Active Substance: FLUTICASONE PROPIONATE\SALMETEROL XINAFOATE
  6. PRILOSEC (OMEPRAZOLE) [Concomitant]
     Active Substance: OMEPRAZOLE MAGNESIUM
  7. ULORIC [Suspect]
     Active Substance: FEBUXOSTAT
     Indication: GOUT
     Dosage: 1 IN 1 D
     Route: 048
     Dates: start: 20090609, end: 20100517
  8. COLCHICINE. [Concomitant]
     Active Substance: COLCHICINE

REACTIONS (3)
  - Burning sensation [None]
  - Gout [None]
  - Paraesthesia [None]

NARRATIVE: CASE EVENT DATE: 201001
